FAERS Safety Report 8260635-5 (Version None)
Quarter: 2012Q2

REPORT INFORMATION
  Report Type: 
  Country: None (occurrence: None)
  Receive Date: 20120404
  Receipt Date: 20120326
  Transmission Date: 20120825
  Serious: Yes (Life-Threatening, Hospitalization, Other)
  Sender: FDA-Public Use
  Company Number: FR-BRISTOL-MYERS SQUIBB COMPANY-16483695

PATIENT
  Age: 75 Year
  Sex: Female

DRUGS (7)
  1. PREVISCAN [Concomitant]
  2. ATORVASTATIN [Concomitant]
  3. ESOMEPRAZOLE [Concomitant]
  4. FERROUS FUMARATE [Concomitant]
  5. FUROSEMIDE [Concomitant]
  6. COUMADIN [Suspect]
  7. ATACAND [Concomitant]

REACTIONS (3)
  - ALOPECIA [None]
  - COMA [None]
  - SEPSIS [None]
